FAERS Safety Report 20291984 (Version 1)
Quarter: 2022Q1

REPORT INFORMATION
  Report Type: Spontaneous
  Country: US (occurrence: US)
  Receive Date: 20220104
  Receipt Date: 20220104
  Transmission Date: 20220424
  Serious: No
  Sender: FDA-Public Use
  Company Number: US-MYLANLABS-2021M1089193

PATIENT
  Age: 85 Year
  Sex: Male

DRUGS (2)
  1. SCOPOLAMINE [Suspect]
     Active Substance: SCOPOLAMINE
     Indication: Salivary hypersecretion
     Dosage: 1 MILLIGRAM, Q3D
     Route: 062
     Dates: start: 20210610
  2. SCOPOLAMINE [Suspect]
     Active Substance: SCOPOLAMINE
     Dosage: 1 MILLIGRAM, Q3D
     Route: 062
     Dates: start: 20210610

REACTIONS (2)
  - Product adhesion issue [Unknown]
  - Off label use [Unknown]

NARRATIVE: CASE EVENT DATE: 20210610
